FAERS Safety Report 4865334-5 (Version None)
Quarter: 2005Q4

REPORT INFORMATION
  Report Type: 
  Country: None (occurrence: None)
  Receive Date: 20051221
  Receipt Date: 20051221
  Transmission Date: 20060501
  Serious: Yes (Hospitalization)
  Sender: FDA-Public Use
  Company Number: None

PATIENT
  Age: 49 Year
  Sex: Female
  Weight: 49.8957 kg

DRUGS (5)
  1. AVASTIN [Suspect]
     Indication: OVARIAN CANCER
     Dosage: 15 MG/KG Q 3 WEEKS IV
     Route: 042
     Dates: start: 20051208
  2. TAXOL [Concomitant]
  3. CARBOPLATIN AUC [Concomitant]
  4. COMPAZINE [Concomitant]
  5. SCALP PROSTHESIS [Concomitant]

REACTIONS (1)
  - ABDOMINAL PAIN [None]
